FAERS Safety Report 4550656-8 (Version None)
Quarter: 2005Q1

REPORT INFORMATION
  Report Type: 
  Country: None (occurrence: None)
  Receive Date: 20050112
  Receipt Date: 20050103
  Transmission Date: 20050727
  Serious: Yes (Hospitalization, Other)
  Sender: FDA-Public Use
  Company Number: US-ABBOTT-05P-163-0285158-00

PATIENT
  Sex: Female
  Weight: 76.272 kg

DRUGS (1)
  1. DEPAKOTE [Suspect]
     Indication: MANIA
     Route: 048
     Dates: start: 19990101, end: 20030101

REACTIONS (7)
  - ALOPECIA [None]
  - CARDIOMEGALY [None]
  - CHOLELITHIASIS [None]
  - DEPRESSION [None]
  - HEPATIC MASS [None]
  - PANCREATITIS [None]
  - WEIGHT INCREASED [None]
